FAERS Safety Report 7665045-7 (Version None)
Quarter: 2011Q3

REPORT INFORMATION
  Report Type: 
  Country: None (occurrence: None)
  Receive Date: 20110806
  Receipt Date: 20110103
  Transmission Date: 20111222
  Serious: No
  Sender: FDA-Public Use
  Company Number: US-ABBOTT-11P-163-0694931-00

PATIENT
  Sex: Female
  Weight: 90.8 kg

DRUGS (2)
  1. UNKNOWN MEDICATION [Concomitant]
     Indication: MENSTRUAL DISORDER
  2. NIASPAN [Suspect]
     Indication: HIGH DENSITY LIPOPROTEIN DECREASED
     Dosage: AT BEDTIME
     Dates: start: 20101201

REACTIONS (5)
  - ERYTHEMA [None]
  - SKIN DISORDER [None]
  - PALPITATIONS [None]
  - BURNING SENSATION [None]
  - SKIN BURNING SENSATION [None]
